FAERS Safety Report 8295060-4 (Version None)
Quarter: 2012Q2

REPORT INFORMATION
  Report Type: 
  Country: None (occurrence: None)
  Receive Date: 20120418
  Receipt Date: 20120409
  Transmission Date: 20120825
  Serious: Yes (Hospitalization)
  Sender: FDA-Public Use
  Company Number: US-ASTRAZENECA-2010SE55369

PATIENT
  Age: 60 Year
  Sex: Male
  Weight: 95.3 kg

DRUGS (21)
  1. SEROQUEL XR [Suspect]
     Indication: DEPRESSION
     Route: 048
  2. SEROQUEL XR [Suspect]
     Indication: SCHIZOPHRENIA, PARANOID TYPE
     Route: 048
  3. SEROQUEL XR [Suspect]
     Route: 048
  4. SEROQUEL XR [Suspect]
     Route: 048
     Dates: end: 20100101
  5. SEROQUEL XR [Suspect]
     Route: 048
     Dates: start: 20100101
  6. FLUPHENAZINE [Concomitant]
     Route: 048
  7. SEROQUEL XR [Suspect]
     Indication: ANXIETY
     Route: 048
  8. SEROQUEL XR [Suspect]
     Route: 048
     Dates: start: 20050101
  9. SEROQUEL XR [Suspect]
     Route: 048
     Dates: start: 20050101
  10. CLONAZEPAM [Concomitant]
     Indication: ANXIETY
     Route: 048
  11. DEPAKOTE [Concomitant]
     Route: 048
  12. SEROQUEL XR [Suspect]
     Route: 048
  13. SEROQUEL XR [Suspect]
     Route: 048
     Dates: start: 20050101
  14. SEROQUEL XR [Suspect]
     Route: 048
     Dates: start: 20100101
  15. TRIPHEXIN [Concomitant]
     Indication: ADVERSE DRUG REACTION
     Route: 048
  16. SEROQUEL XR [Suspect]
     Route: 048
  17. SEROQUEL XR [Suspect]
     Route: 048
     Dates: end: 20100101
  18. SEROQUEL XR [Suspect]
     Route: 048
     Dates: start: 20100101
  19. NAVANE [Concomitant]
     Indication: PROPHYLAXIS AGAINST ALCOHOLIC WITHDRAWAL SYNDROME
  20. SEROQUEL XR [Suspect]
     Route: 048
     Dates: end: 20100101
  21. DEPAKOTE [Concomitant]
     Indication: MOOD SWINGS
     Route: 048

REACTIONS (10)
  - ABDOMINAL PAIN UPPER [None]
  - COORDINATION ABNORMAL [None]
  - DIARRHOEA [None]
  - HYPERSOMNIA [None]
  - POLLAKIURIA [None]
  - SCHIZOPHRENIA, PARANOID TYPE [None]
  - PROSTATIC DISORDER [None]
  - DRUG INEFFECTIVE [None]
  - DEPRESSION [None]
  - DIZZINESS [None]
